FAERS Safety Report 7100394-2 (Version None)
Quarter: 2010Q4

REPORT INFORMATION
  Report Type: 
  Country: None (occurrence: None)
  Receive Date: 20101112
  Receipt Date: 20081128
  Transmission Date: 20110411
  Serious: Yes (Other)
  Sender: FDA-Public Use
  Company Number: PHHY2008NZ37252

PATIENT
  Age: 60 Year
  Sex: Male

DRUGS (2)
  1. CLOZARIL [Suspect]
     Indication: SCHIZOPHRENIA
     Dosage: 150 MG DAILY
     Dates: start: 20000101, end: 20080501
  2. CLOZARIL [Suspect]
     Dosage: UNK
     Dates: start: 20081126

REACTIONS (2)
  - ELECTROCARDIOGRAM QT PROLONGED [None]
  - SINUS BRADYCARDIA [None]
